FAERS Safety Report 14715490 (Version 1)
Quarter: 2018Q2

REPORT INFORMATION
  Report Type: Spontaneous
  Country: DE (occurrence: DE)
  Receive Date: 20180404
  Receipt Date: 20180404
  Transmission Date: 20180711
  Serious: Yes (Hospitalization, Other)
  Sender: FDA-Public Use
  Company Number: DE-MYLANLABS-2018M1020401

PATIENT
  Sex: Male
  Weight: 3.63 kg

DRUGS (1)
  1. QUETIAPINE. [Suspect]
     Active Substance: QUETIAPINE
     Indication: PRODUCT USED FOR UNKNOWN INDICATION
     Dosage: 300 MG, QD, DAILY DOSE: 300 MG MILLIGRAM(S) EVERY DAY
     Route: 064

REACTIONS (3)
  - Blood pH decreased [Unknown]
  - pH body fluid decreased [Unknown]
  - Foetal exposure during pregnancy [Unknown]
